FAERS Safety Report 8162293-7 (Version None)
Quarter: 2012Q1

REPORT INFORMATION
  Report Type: 
  Country: None (occurrence: None)
  Receive Date: 20120221
  Receipt Date: 20120207
  Transmission Date: 20120608
  Serious: Yes (Death)
  Sender: FDA-Public Use
  Company Number: JPI-P-011375

PATIENT
  Age: 52 Year
  Sex: Male

DRUGS (4)
  1. XYREM [Suspect]
     Indication: INSOMNIA
     Dosage: 4.5 GM (2.25 GM,2 IN 1 D),ORAL, 9 GM (4.5 GM,2 IN 1 D),ORAL
     Route: 048
     Dates: start: 20100101, end: 20100707
  2. XYREM [Suspect]
     Indication: SLEEP APNOEA SYNDROME
     Dosage: 4.5 GM (2.25 GM,2 IN 1 D),ORAL, 9 GM (4.5 GM,2 IN 1 D),ORAL
     Route: 048
     Dates: start: 20100101, end: 20100707
  3. XYREM [Suspect]
     Indication: INSOMNIA
     Dosage: 4.5 GM (2.25 GM,2 IN 1 D),ORAL, 9 GM (4.5 GM,2 IN 1 D),ORAL
     Route: 048
     Dates: start: 20100308, end: 20100101
  4. XYREM [Suspect]
     Indication: SLEEP APNOEA SYNDROME
     Dosage: 4.5 GM (2.25 GM,2 IN 1 D),ORAL, 9 GM (4.5 GM,2 IN 1 D),ORAL
     Route: 048
     Dates: start: 20100308, end: 20100101

REACTIONS (3)
  - BENIGN INTRACRANIAL HYPERTENSION [None]
  - CEREBROVASCULAR ACCIDENT [None]
  - HYPERTENSION [None]
